FAERS Safety Report 16675745 (Version 2)
Quarter: 2019Q3

REPORT INFORMATION
  Report Type: Report from Study
  Country: None (occurrence: DE)
  Receive Date: 20190806
  Receipt Date: 20190808
  Transmission Date: 20191004
  Serious: Yes (Other)
  Sender: FDA-Public Use
  Company Number: DE-ABBVIE-19K-062-2878860-00

PATIENT
  Age: 57 Year
  Sex: Male

DRUGS (2)
  1. LEVODOPA DEPOT [Concomitant]
     Indication: PRODUCT USED FOR UNKNOWN INDICATION
  2. DUODOPA [Suspect]
     Active Substance: CARBIDOPA\LEVODOPA
     Indication: PARKINSON^S DISEASE
     Dosage: MD 3.7 ML; CRD 3.7 ML/HR; CRN 3.7 ML/HR; ED 3.9 ML
     Route: 050
     Dates: start: 20171212

REACTIONS (4)
  - Mobility decreased [Not Recovered/Not Resolved]
  - Device issue [Unknown]
  - General physical health deterioration [Not Recovered/Not Resolved]
  - Vertigo [Not Recovered/Not Resolved]

NARRATIVE: CASE EVENT DATE: 20190805
